FAERS Safety Report 5229607-9 (Version None)
Quarter: 2007Q1

REPORT INFORMATION
  Report Type: 
  Country: None (occurrence: None)
  Receive Date: 20070201
  Receipt Date: 20070125
  Transmission Date: 20070707
  Serious: Yes (Death)
  Sender: FDA-Public Use
  Company Number: 2006-06364

PATIENT
  Sex: Male

DRUGS (13)
  1. NORCO [Suspect]
     Indication: PAIN
     Dosage: ORAL
     Route: 048
  2. LORCET(PARACETAMOL) [Suspect]
     Indication: PAIN
  3. TALWIN NX [Suspect]
     Indication: PAIN
  4. AMBIEN [Suspect]
     Indication: PAIN
  5. LORTAB [Suspect]
     Indication: PAIN
  6. VICODIN [Suspect]
     Indication: PAIN
  7. TEMAZEPAM [Suspect]
     Indication: PAIN
  8. DALMANE [Suspect]
     Indication: PAIN
  9. RESTORIL [Suspect]
     Indication: PAIN
  10. LIDODERM [Suspect]
     Indication: PAIN
  11. LIDOCAINE [Suspect]
     Indication: PAIN
  12. ZONEGRAN [Concomitant]
  13. PROPONAPAT [Concomitant]

REACTIONS (25)
  - ABNORMAL DREAMS [None]
  - ADRENAL HAEMORRHAGE [None]
  - AMNESIA [None]
  - ANXIETY [None]
  - BLOOD CALCIUM DECREASED [None]
  - BLOOD CHLORIDE INCREASED [None]
  - BLOOD CREATINE INCREASED [None]
  - BLOOD GLUCOSE INCREASED [None]
  - BLOOD PH DECREASED [None]
  - BLOOD POTASSIUM DECREASED [None]
  - BRADYCARDIA [None]
  - BRAIN OEDEMA [None]
  - CARDIAC ARREST [None]
  - COMPLETED SUICIDE [None]
  - CONFUSIONAL STATE [None]
  - DEPRESSION [None]
  - FACE INJURY [None]
  - GUN SHOT WOUND [None]
  - HALLUCINATION [None]
  - HEART RATE INCREASED [None]
  - MENTAL STATUS CHANGES [None]
  - MOOD ALTERED [None]
  - NERVOUSNESS [None]
  - PULMONARY OEDEMA [None]
  - VISUAL DISTURBANCE [None]
